FAERS Safety Report 13516048 (Version 2)
Quarter: 2017Q2

REPORT INFORMATION
  Report Type: Report from Study
  Country: None (occurrence: AR)
  Receive Date: 20170505
  Receipt Date: 20170601
  Transmission Date: 20170830
  Serious: Yes (Death, Hospitalization)
  Sender: FDA-Public Use
  Company Number: AR-ABBVIE-17P-007-1951896-00

PATIENT
  Age: 77 Year
  Sex: Male

DRUGS (1)
  1. ZEMPLAR [Suspect]
     Active Substance: PARICALCITOL
     Indication: SECONDARY HYPERTHYROIDISM
     Route: 042
     Dates: start: 20140617

REACTIONS (5)
  - Hallucination [Not Recovered/Not Resolved]
  - Hallucination [Recovered/Resolved]
  - Mental disorder [Unknown]
  - General physical health deterioration [Fatal]
  - Device occlusion [Recovering/Resolving]

NARRATIVE: CASE EVENT DATE: 201703
